FAERS Safety Report 5352319-8 (Version None)
Quarter: 2007Q2

REPORT INFORMATION
  Report Type: 
  Country: None (occurrence: None)
  Receive Date: 20070607
  Receipt Date: 20070607
  Transmission Date: 20071010
  Serious: Yes (Hospitalization)
  Sender: FDA-Public Use
  Company Number: None

PATIENT
  Sex: Female
  Weight: 60 kg

DRUGS (7)
  1. CISPLATIN [Suspect]
     Dosage: 84 MG
  2. DOXORUBICIN HYDROCHLORIDE [Suspect]
     Dosage: 84 MG
  3. TAXOL [Suspect]
     Dosage: 269 MG
  4. KEPPRA [Concomitant]
  5. LORTAB [Concomitant]
  6. METAPROLOL [Concomitant]
  7. PROTONIX [Concomitant]

REACTIONS (2)
  - PLATELET COUNT DECREASED [None]
  - SUBDURAL HAEMORRHAGE [None]
